FAERS Safety Report 6233611-1 (Version None)
Quarter: 2009Q2

REPORT INFORMATION
  Report Type: 
  Country: None (occurrence: None)
  Receive Date: 20090617
  Receipt Date: 20090608
  Transmission Date: 20091009
  Serious: Yes (Other)
  Sender: FDA-Public Use
  Company Number: SE-PFIZER INC-2009227167

PATIENT

DRUGS (4)
  1. NICOTINE [Suspect]
     Indication: SMOKING CESSATION THERAPY
     Dosage: 0.5 MG: 1-2 DOSES PUFFS PER HOUR
     Route: 045
     Dates: start: 19990101
  2. TROMBYL [Concomitant]
     Indication: CORONARY ARTERY DISEASE
     Dates: start: 19990101
  3. TRIATEC [Concomitant]
     Indication: CORONARY ARTERY DISEASE
     Dosage: UNK
     Dates: start: 19990101
  4. SELOKEN [Concomitant]
     Indication: CORONARY ARTERY DISEASE
     Dosage: UNK
     Dates: start: 19990101

REACTIONS (8)
  - ANXIETY [None]
  - ARTHRALGIA [None]
  - DEPENDENCE [None]
  - FATIGUE [None]
  - INTENTIONAL DRUG MISUSE [None]
  - LISTLESS [None]
  - MYALGIA [None]
  - WITHDRAWAL SYNDROME [None]
